FAERS Safety Report 4714498-2 (Version None)
Quarter: 2005Q3

REPORT INFORMATION
  Report Type: 
  Country: None (occurrence: None)
  Receive Date: 20050714
  Receipt Date: 20050616
  Transmission Date: 20060218
  Serious: Yes (Life-Threatening, Hospitalization, Other)
  Sender: FDA-Public Use
  Company Number: PHNU2005DE02293

PATIENT
  Age: 67 Year
  Sex: Male
  Weight: 82 kg

DRUGS (3)
  1. LAMISIL [Suspect]
     Indication: ONYCHOMYCOSIS
     Dosage: 250 MG/D
     Route: 048
     Dates: start: 20040908, end: 20040923
  2. MARCUMAR [Concomitant]
  3. SORTIS [Concomitant]

REACTIONS (8)
  - BLISTER [None]
  - DERMATITIS EXFOLIATIVE [None]
  - ERYTHEMA [None]
  - MENTAL DISORDER [None]
  - OEDEMA [None]
  - OSTEOPOROSIS [None]
  - RASH [None]
  - RASH PUSTULAR [None]
